FAERS Safety Report 20263051 (Version 1)
Quarter: 2021Q4

REPORT INFORMATION
  Report Type: Spontaneous
  Country: CN (occurrence: CN)
  Receive Date: 20211231
  Receipt Date: 20211231
  Transmission Date: 20220303
  Serious: Yes (Other)
  Sender: FDA-Public Use
  Company Number: CN-009507513-2112CHN008856

PATIENT
  Age: 11 Day
  Sex: Female
  Weight: 1.58 kg

DRUGS (2)
  1. CILASTATIN SODIUM\IMIPENEM [Suspect]
     Active Substance: CILASTATIN SODIUM\IMIPENEM
     Indication: Sepsis neonatal
     Dosage: 27 MG, TWICE A DAY
     Route: 041
     Dates: start: 20211116, end: 20211201
  2. CILASTATIN SODIUM\IMIPENEM [Suspect]
     Active Substance: CILASTATIN SODIUM\IMIPENEM
     Indication: Neonatal pneumonia

REACTIONS (4)
  - Thrombocytopenia neonatal [Recovering/Resolving]
  - Agranulocytosis [Recovering/Resolving]
  - Leukopenia neonatal [Recovering/Resolving]
  - Product use issue [Unknown]

NARRATIVE: CASE EVENT DATE: 20211116
